FAERS Safety Report 8535900-4 (Version None)
Quarter: 2012Q3

REPORT INFORMATION
  Report Type: 
  Country: None (occurrence: None)
  Receive Date: 20120725
  Receipt Date: 20120718
  Transmission Date: 20120928
  Serious: Yes (Other)
  Sender: FDA-Public Use
  Company Number: PHHY2012BR062801

PATIENT
  Sex: Male

DRUGS (1)
  1. RITALIN LA [Suspect]
     Indication: DISTURBANCE IN ATTENTION
     Dosage: 20 MG, DAILY
     Dates: start: 20120201

REACTIONS (4)
  - DIZZINESS [None]
  - AGGRESSION [None]
  - RETCHING [None]
  - SUICIDAL BEHAVIOUR [None]
